FAERS Safety Report 20069003 (Version 2)
Quarter: 2022Q2

REPORT INFORMATION
  Report Type: Spontaneous
  Country: US (occurrence: US)
  Receive Date: 20211115
  Receipt Date: 20220525
  Transmission Date: 20220721
  Serious: Yes (Hospitalization)
  Sender: FDA-Public Use
  Company Number: US-PFIZER INC-2021576555

PATIENT
  Age: 65 Year
  Sex: Female
  Weight: 102.9 kg

DRUGS (1)
  1. XELJANZ XR [Suspect]
     Active Substance: TOFACITINIB CITRATE
     Indication: Rheumatoid arthritis
     Dosage: 11 MG, DAILY
     Route: 048
     Dates: start: 2019, end: 202204

REACTIONS (5)
  - Adverse event [Unknown]
  - Product dose omission issue [Unknown]
  - Depressed mood [Unknown]
  - Discouragement [Unknown]
  - Arthritis [Unknown]

NARRATIVE: CASE EVENT DATE: 20211029
